FAERS Safety Report 7338954-6 (Version None)
Quarter: 2011Q1

REPORT INFORMATION
  Report Type: 
  Country: None (occurrence: None)
  Receive Date: 20110308
  Receipt Date: 20110301
  Transmission Date: 20110831
  Serious: Yes (Other)
  Sender: FDA-Public Use
  Company Number: TW-ROCHE-753450

PATIENT
  Age: 51 Year
  Sex: Female

DRUGS (2)
  1. RECORMON [Suspect]
     Route: 058
     Dates: start: 20070801
  2. MIRCERA [Suspect]
     Route: 058
     Dates: start: 20100901

REACTIONS (1)
  - HAEMOGLOBIN DECREASED [None]
